FAERS Safety Report 7744816-2 (Version None)
Quarter: 2011Q3

REPORT INFORMATION
  Report Type: 
  Country: None (occurrence: None)
  Receive Date: 20110912
  Receipt Date: 20110912
  Transmission Date: 20111222
  Serious: Yes (Other)
  Sender: FDA-Public Use
  Company Number: None

PATIENT
  Age: 52 Year
  Sex: Female
  Weight: 61.234 kg

DRUGS (1)
  1. TYLENOL-500 [Suspect]
     Indication: PAIN
     Dosage: 2 GELCAPS

REACTIONS (5)
  - DYSSTASIA [None]
  - NAUSEA [None]
  - FEELING ABNORMAL [None]
  - DIZZINESS [None]
  - GAIT DISTURBANCE [None]
